FAERS Safety Report 19491331 (Version 8)
Quarter: 2022Q3

REPORT INFORMATION
  Report Type: Spontaneous
  Country: US (occurrence: US)
  Receive Date: 20210705
  Receipt Date: 20220923
  Transmission Date: 20221027
  Serious: Yes (Other)
  Sender: FDA-Public Use
  Company Number: US-SA-SAC20210702000041

PATIENT
  Age: 24 Year
  Sex: Male

DRUGS (10)
  1. ALPROLIX [Suspect]
     Active Substance: EFTRENONACOG ALFA
     Indication: Haemorrhage prophylaxis
     Dosage: 3345 IU
     Route: 042
  2. ALPROLIX [Suspect]
     Active Substance: EFTRENONACOG ALFA
     Indication: Haemorrhage prophylaxis
     Dosage: 3345 IU
     Route: 042
  3. ALPROLIX [Suspect]
     Active Substance: EFTRENONACOG ALFA
     Dosage: 762 U, QD
     Route: 042
  4. ALPROLIX [Suspect]
     Active Substance: EFTRENONACOG ALFA
     Dosage: 762 U, QD
     Route: 042
  5. ALPROLIX [Suspect]
     Active Substance: EFTRENONACOG ALFA
     Dosage: 3450 U
     Route: 041
  6. ALPROLIX [Suspect]
     Active Substance: EFTRENONACOG ALFA
     Dosage: 3450 U
     Route: 041
  7. ALPROLIX [Suspect]
     Active Substance: EFTRENONACOG ALFA
     Dosage: 3450 U, QW
     Route: 042
  8. ALPROLIX [Suspect]
     Active Substance: EFTRENONACOG ALFA
     Dosage: 3450 U, QW
     Route: 042
  9. ALPROLIX [Suspect]
     Active Substance: EFTRENONACOG ALFA
     Dosage: 3450 U
  10. ALPROLIX [Suspect]
     Active Substance: EFTRENONACOG ALFA
     Dosage: 3450 U

REACTIONS (8)
  - Haemorrhage [Unknown]
  - Haemorrhage [Recovering/Resolving]
  - Head injury [Recovered/Resolved]
  - Ligament sprain [Unknown]
  - Fall [Unknown]
  - Ligament sprain [Unknown]
  - Limb injury [Unknown]
  - Headache [Unknown]

NARRATIVE: CASE EVENT DATE: 20210627
